FAERS Safety Report 5352052-2 (Version None)
Quarter: 2007Q2

REPORT INFORMATION
  Report Type: 
  Country: None (occurrence: None)
  Receive Date: 20070611
  Receipt Date: 20070529
  Transmission Date: 20071010
  Serious: Yes (Hospitalization, Other)
  Sender: FDA-Public Use
  Company Number: PHBS2007IR09022

PATIENT
  Age: 36 Year
  Sex: Male

DRUGS (3)
  1. CYCLOSPORINE [Suspect]
     Indication: RENAL TRANSPLANT
     Route: 065
  2. STEROIDS NOS [Suspect]
     Indication: RENAL TRANSPLANT
     Dosage: HIGH-DOSE
     Route: 065
  3. METHYLPREDNISOLONE 16MG TAB [Suspect]
     Indication: KIDNEY TRANSPLANT REJECTION

REACTIONS (5)
  - CHORIORETINOPATHY [None]
  - KIDNEY TRANSPLANT REJECTION [None]
  - MACULAR OEDEMA [None]
  - VISION BLURRED [None]
  - VISUAL ACUITY REDUCED [None]
